FAERS Safety Report 12595550 (Version 1)
Quarter: 2016Q3

REPORT INFORMATION
  Report Type: Spontaneous
  Country: GB (occurrence: GB)
  Receive Date: 20160726
  Receipt Date: 20160726
  Transmission Date: 20161109
  Serious: Yes (Other)
  Sender: FDA-Public Use
  Company Number: GB-CONCORDIA PHARMACEUTICALS INC.-GSH201607-003767

PATIENT
  Age: 40 Year
  Sex: Female
  Weight: 82.55 kg

DRUGS (16)
  1. PREDNISOLONE. [Suspect]
     Active Substance: PREDNISOLONE
  2. CYCLIZINE [Suspect]
     Active Substance: CYCLIZINE
     Route: 030
  3. LORATADINE. [Suspect]
     Active Substance: LORATADINE
  4. ORAMORPH [Suspect]
     Active Substance: MORPHINE SULFATE
  5. LYRICA [Suspect]
     Active Substance: PREGABALIN
     Dosage: 150MG AND 300MG
  6. ADCAL-D3 [Concomitant]
     Active Substance: CALCIUM CARBONATE\CHOLECALCIFEROL
  7. CHLORHEXIDINE GLUCONATE. [Suspect]
     Active Substance: CHLORHEXIDINE GLUCONATE
     Indication: MOUTH ULCERATION
     Route: 048
     Dates: start: 20160708, end: 20160708
  8. ALENDRONIC ACID [Concomitant]
     Active Substance: ALENDRONIC ACID
  9. PHENOXYMETHYLPENICILLIN [Concomitant]
     Active Substance: PENICILLIN V
  10. DIHYDROCODEINE [Suspect]
     Active Substance: DIHYDROCODEINE
  11. MONTELUKAST [Concomitant]
     Active Substance: MONTELUKAST SODIUM
  12. SERETIDE [Suspect]
     Active Substance: FLUTICASONE PROPIONATE\SALMETEROL XINAFOATE
     Route: 055
  13. AMITRIPTYLINE [Concomitant]
     Active Substance: AMITRIPTYLINE
  14. COSMOCOL [Concomitant]
  15. LACTULOSE. [Concomitant]
     Active Substance: LACTULOSE
  16. SALBUTAMOL [Suspect]
     Active Substance: ALBUTEROL
     Route: 055

REACTIONS (7)
  - Swelling face [Recovering/Resolving]
  - Oral discomfort [Recovering/Resolving]
  - Feeling abnormal [Recovering/Resolving]
  - Oxygen saturation decreased [Recovering/Resolving]
  - Drug interaction [Unknown]
  - Asthma [Recovering/Resolving]
  - Feeling drunk [Recovering/Resolving]

NARRATIVE: CASE EVENT DATE: 20160708
